FAERS Safety Report 12142205 (Version 1)
Quarter: 2016Q1

REPORT INFORMATION
  Report Type: Spontaneous
  Country: CA (occurrence: CA)
  Receive Date: 20160303
  Receipt Date: 20160303
  Transmission Date: 20160526
  Serious: Yes (Other)
  Sender: FDA-Public Use
  Company Number: CA-TEVA-639574ACC

PATIENT
  Age: 57 Year
  Sex: Female
  Weight: 59 kg

DRUGS (11)
  1. VITAMIN B12 [Concomitant]
     Active Substance: CYANOCOBALAMIN
  2. LEVOTHYROXINE. [Concomitant]
     Active Substance: LEVOTHYROXINE
  3. TYLENOL WITH CODEINE [Concomitant]
     Active Substance: ACETAMINOPHEN\CODEINE PHOSPHATE
  4. CLONAZEPAM. [Concomitant]
     Active Substance: CLONAZEPAM
  5. CODEINE CONTIN [Concomitant]
     Active Substance: CODEINE SULFATE
  6. ESTROGENS [Concomitant]
     Active Substance: ESTROGENS
  7. LIOTHYRONINE [Concomitant]
     Active Substance: LIOTHYRONINE
  8. TRAZODONE [Suspect]
     Active Substance: TRAZODONE HYDROCHLORIDE
     Indication: SLEEP DISORDER
     Route: 048
  9. BUPROPION. [Concomitant]
     Active Substance: BUPROPION
  10. CYMBALTA [Concomitant]
     Active Substance: DULOXETINE HYDROCHLORIDE
  11. TRAMADOL HYDROCHLORIDE. [Concomitant]
     Active Substance: TRAMADOL HYDROCHLORIDE

REACTIONS (9)
  - Vaginal laceration [Unknown]
  - Constipation [Unknown]
  - Muscle twitching [Unknown]
  - Abasia [Unknown]
  - Anorgasmia [Unknown]
  - Drug withdrawal syndrome [Unknown]
  - Libido decreased [Unknown]
  - Vulval disorder [Unknown]
  - Weight increased [Unknown]
